FAERS Safety Report 17660883 (Version 2)
Quarter: 2020Q2

REPORT INFORMATION
  Report Type: Spontaneous
  Country: US (occurrence: US)
  Receive Date: 20200413
  Receipt Date: 20200522
  Transmission Date: 20200713
  Serious: Yes (Life-Threatening, Other)
  Sender: FDA-Public Use
  Company Number: US-STRIDES ARCOLAB LIMITED-2020SP004652

PATIENT
  Age: 64 Year
  Sex: Female

DRUGS (1)
  1. HYDRALAZINE HCL [Suspect]
     Active Substance: HYDRALAZINE HYDROCHLORIDE
     Indication: HYPERTENSION
     Dosage: 100 MILLIGRAM, TID
     Route: 065

REACTIONS (19)
  - Dizziness [Recovered/Resolved]
  - Pulmonary renal syndrome [Recovered/Resolved]
  - Conjunctival discolouration [Recovered/Resolved]
  - Glomerulonephritis rapidly progressive [Recovered/Resolved]
  - Respiratory failure [Recovered/Resolved]
  - Cough [Recovered/Resolved]
  - Dyspnoea paroxysmal nocturnal [Recovered/Resolved]
  - Peripheral swelling [Recovered/Resolved]
  - Anti-neutrophil cytoplasmic antibody positive vasculitis [Recovered/Resolved]
  - Renal cyst [Recovered/Resolved]
  - Anuria [Recovered/Resolved]
  - Fatigue [Recovered/Resolved]
  - Respiratory distress [Recovered/Resolved]
  - Decreased appetite [Recovered/Resolved]
  - Acute kidney injury [Recovered/Resolved]
  - Orthopnoea [Recovered/Resolved]
  - Rales [Recovered/Resolved]
  - Pulmonary mass [Recovered/Resolved]
  - Dyspnoea [Recovered/Resolved]
